FAERS Safety Report 4333256-4 (Version None)
Quarter: 2004Q2

REPORT INFORMATION
  Report Type: 
  Country: None (occurrence: None)
  Receive Date: 20040401
  Receipt Date: 20040323
  Transmission Date: 20050107
  Serious: Yes (Death)
  Sender: FDA-Public Use
  Company Number: 163-20785-04020760

PATIENT
  Age: 77 Year
  Sex: Male

DRUGS (1)
  1. THALOMID [Suspect]
     Indication: CARCINOMA
     Dosage: 50 MG, DAILY, ORAL
     Route: 048
     Dates: start: 20031231, end: 20040205

REACTIONS (2)
  - MALIGNANT NEOPLASM PROGRESSION [None]
  - PROSTATE CANCER [None]
